FAERS Safety Report 17434212 (Version 1)
Quarter: 2020Q1

REPORT INFORMATION
  Report Type: Spontaneous
  Country: US (occurrence: US)
  Receive Date: 20200203
  Receipt Date: 20200203
  Transmission Date: 20200409
  Serious: Yes (Hospitalization)
  Sender: FDA-Public Use
  Company Number: None

PATIENT
  Age: 50 Year
  Sex: Female

DRUGS (21)
  1. DICYCLOMINE [Concomitant]
     Active Substance: DICYCLOMINE HYDROCHLORIDE
  2. SENEXON-S [Concomitant]
     Active Substance: DOCUSATE SODIUM\SENNOSIDES A AND B
  3. DRONABINOL. [Concomitant]
     Active Substance: DRONABINOL
  4. VERAPAMIL [Concomitant]
     Active Substance: VERAPAMIL HYDROCHLORIDE
  5. AMITRIPTYLIN [Concomitant]
     Active Substance: AMITRIPTYLINE
  6. CYMBALTA [Concomitant]
     Active Substance: DULOXETINE HYDROCHLORIDE
  7. VITAMIN D3 [Concomitant]
     Active Substance: CHOLECALCIFEROL
  8. ONDANSETRON [Concomitant]
     Active Substance: ONDANSETRON
  9. MELANTONIN [Concomitant]
  10. MERCAPTOPUR [Concomitant]
  11. PREGABALIN. [Concomitant]
     Active Substance: PREGABALIN
  12. AZELASTINE. [Concomitant]
     Active Substance: AZELASTINE HYDROCHLORIDE
  13. PANTOPRAZOLE [Concomitant]
     Active Substance: PANTOPRAZOLE
  14. DIAZEPAM. [Concomitant]
     Active Substance: DIAZEPAM
  15. DULOXETINE. [Concomitant]
     Active Substance: DULOXETINE
  16. MULTIPLE VIT [Concomitant]
  17. HUMIRA [Suspect]
     Active Substance: ADALIMUMAB
     Indication: CROHN^S DISEASE
     Dosage: ?          OTHER DOSE:1 PEN;OTHER FREQUENCY:Q14D;?
     Route: 058
  18. DIPHENHYDRAM [Concomitant]
  19. LEVEIRACETA [Concomitant]
  20. PEG 3350/KCL SOL/SODIUM [Concomitant]
  21. TOPIRAMATE. [Concomitant]
     Active Substance: TOPIRAMATE

REACTIONS (1)
  - Spinal disorder [None]

NARRATIVE: CASE EVENT DATE: 20200203
